FAERS Safety Report 9493791 (Version 1)
Quarter: 2013Q3

REPORT INFORMATION
  Report Type: Spontaneous
  Country: GB (occurrence: GB)
  Receive Date: 20130902
  Receipt Date: 20130902
  Transmission Date: 20140515
  Serious: Yes (Other)
  Sender: FDA-Public Use
  Company Number: GB-MYLANLABS-2013S1018869

PATIENT
  Age: 55 Year
  Sex: Female

DRUGS (2)
  1. VENLAFAXINE [Suspect]
     Indication: FLUSHING
     Route: 065
  2. TAMOXIFEN [Suspect]
     Indication: BREAST CANCER
     Route: 065

REACTIONS (5)
  - Cerebral vasoconstriction [Recovering/Resolving]
  - Flushing [Unknown]
  - Subarachnoid haemorrhage [Recovering/Resolving]
  - Cerebral haemorrhage [Recovering/Resolving]
  - Leukoencephalopathy [Recovering/Resolving]
